FAERS Safety Report 6643520-1 (Version None)
Quarter: 2010Q1

REPORT INFORMATION
  Report Type: 
  Country: None (occurrence: None)
  Receive Date: 20100320
  Receipt Date: 20100308
  Transmission Date: 20100710
  Serious: Yes (Death)
  Sender: FDA-Public Use
  Company Number: SK-B.I. PHARMACEUTICALS,INC./RIDGEFIELD-2010-DE-01422BY

PATIENT
  Age: 73 Year
  Sex: Male

DRUGS (2)
  1. PRITOR [Suspect]
     Indication: HYPERTENSION
     Dosage: 80 MG
     Route: 048
     Dates: start: 20070210, end: 20091015
  2. TENAXUM [Concomitant]
     Route: 065

REACTIONS (1)
  - CARDIAC FAILURE [None]
